FAERS Safety Report 7260172-0 (Version None)
Quarter: 2011Q1

REPORT INFORMATION
  Report Type: 
  Country: None (occurrence: None)
  Receive Date: 20110130
  Receipt Date: 20101007
  Transmission Date: 20110831
  Serious: No
  Sender: FDA-Public Use
  Company Number: US-ABBOTT-10P-163-0676828-00

PATIENT
  Age: 45 Year
  Sex: Female

DRUGS (3)
  1. NEXIUM [Concomitant]
     Indication: GASTROOESOPHAGEAL REFLUX DISEASE
  2. LISINOPRIL [Concomitant]
     Indication: BLOOD PRESSURE
  3. HUMIRA [Suspect]
     Indication: CROHN'S DISEASE
     Dates: start: 20100917

REACTIONS (2)
  - SINUSITIS [None]
  - MIDDLE EAR EFFUSION [None]
